FAERS Safety Report 5352945-6 (Version None)
Quarter: 2007Q2

REPORT INFORMATION
  Report Type: 
  Country: None (occurrence: None)
  Receive Date: 20070607
  Receipt Date: 20070529
  Transmission Date: 20071010
  Serious: Yes (Other)
  Sender: FDA-Public Use
  Company Number: 2007-02662

PATIENT
  Age: 84 Year
  Sex: Male

DRUGS (4)
  1. LOVASTATIN [Suspect]
     Indication: HYPERCHOLESTEROLAEMIA
     Dosage: UNKNOWN DOSE FOR SEVERAL YEARS, ORAL
     Route: 048
  2. KETOCONAZOLE [Suspect]
     Indication: PROSTATE CANCER
     Dosage: 300 MG, TID X 4 WEEKS, ORAL
     Route: 048
     Dates: start: 20060101
  3. HYDROCORTISONE [Concomitant]
  4. ORAL HYPOGLYCEMIC AGENTS [Concomitant]

REACTIONS (4)
  - DRUG INTERACTION [None]
  - DRUG INTERACTION POTENTIATION [None]
  - HEPATITIS [None]
  - RHABDOMYOLYSIS [None]
